FAERS Safety Report 21287176 (Version 1)
Quarter: 2022Q3

REPORT INFORMATION
  Report Type: Spontaneous
  Country: US (occurrence: US)
  Receive Date: 20220902
  Receipt Date: 20220902
  Transmission Date: 20221027
  Serious: No
  Sender: FDA-Public Use
  Company Number: US-PFIZER INC-202201107726

PATIENT
  Age: 47 Year
  Sex: Female

DRUGS (10)
  1. ATORVASTATIN CALCIUM [Interacting]
     Active Substance: ATORVASTATIN CALCIUM
     Dosage: UNK
  2. METOPROLOL TARTRATE [Interacting]
     Active Substance: METOPROLOL TARTRATE
     Dosage: UNK
  3. LYRICA [Interacting]
     Active Substance: PREGABALIN
     Dosage: UNK
  4. PREGABALIN [Interacting]
     Active Substance: PREGABALIN
     Dosage: UNK UNK, 3X/DAY
  5. DITROPAN [Interacting]
     Active Substance: OXYBUTYNIN CHLORIDE
     Dosage: 5 MG
  6. QUETIAPINE FUMARATE [Interacting]
     Active Substance: QUETIAPINE FUMARATE
     Dosage: UNK
  7. KLONOPIN [Interacting]
     Active Substance: CLONAZEPAM
     Dosage: UNK
  8. HYDROCHLOROTHIAZIDE [Interacting]
     Active Substance: HYDROCHLOROTHIAZIDE
     Dosage: UNK
  9. IBUPROFEN [Interacting]
     Active Substance: IBUPROFEN
     Dosage: UNK
  10. ALBUTEROL SULFATE [Interacting]
     Active Substance: ALBUTEROL SULFATE
     Dosage: UNK

REACTIONS (2)
  - Drug interaction [Unknown]
  - Drug level decreased [Unknown]
